FAERS Safety Report 11707914 (Version 4)
Quarter: 2016Q1

REPORT INFORMATION
  Report Type: Other
  Country: GB (occurrence: GB)
  Receive Date: 20151106
  Receipt Date: 20160313
  Transmission Date: 20160525
  Serious: Yes (Disabling, Other)
  Sender: FDA-Public Use
  Company Number: GB-CIPLA LTD.-2015GB08431

PATIENT

DRUGS (18)
  1. SERTRALINE [Suspect]
     Active Substance: SERTRALINE HYDROCHLORIDE
     Dosage: 75 MG, DAILY
     Route: 048
     Dates: start: 20140729, end: 20141013
  2. ASPIRIN. [Concomitant]
     Active Substance: ASPIRIN
     Indication: ANGINA PECTORIS
     Dosage: UNK
     Route: 065
  3. FULTIUM-D3 [Concomitant]
     Indication: SKIN CANCER
     Dosage: 800 UNITS, 1X/DAY
     Route: 048
     Dates: start: 20140129
  4. GLYCERYL TRINITRATE [Concomitant]
     Active Substance: NITROGLYCERIN
     Dosage: 400 ?G, UNK
     Route: 060
  5. ASPIRIN. [Concomitant]
     Active Substance: ASPIRIN
     Indication: MYOCARDIAL ISCHAEMIA
     Dosage: 75 MG, ALTERNATIVE DAYS
     Route: 048
     Dates: start: 20020325
  6. ATORVASTATIN [Concomitant]
     Active Substance: ATORVASTATIN
     Indication: MYOCARDIAL ISCHAEMIA
     Dosage: UNK
     Route: 065
  7. SERTRALINE [Suspect]
     Active Substance: SERTRALINE HYDROCHLORIDE
     Indication: STRESS
     Dosage: 50 MG, DAILY
     Route: 048
     Dates: start: 20141014, end: 20141203
  8. SERTRALINE [Suspect]
     Active Substance: SERTRALINE HYDROCHLORIDE
     Dosage: UNK
     Route: 048
     Dates: start: 2013
  9. ATORVASTATIN [Concomitant]
     Active Substance: ATORVASTATIN
     Indication: ANGINA PECTORIS
     Dosage: 5 MG, QD, 1/2 X 10 MG, 1X/DAY
     Route: 048
     Dates: start: 20030702
  10. FULTIUM-D3 [Concomitant]
     Indication: MYALGIA
     Dosage: UNK
     Route: 065
  11. IBUPROFEN. [Concomitant]
     Active Substance: IBUPROFEN
     Indication: FIBROMYALGIA
     Dosage: 200 MG, 3X/DAY
     Route: 048
     Dates: start: 20110325
  12. QUININE SULPHATE [Concomitant]
     Active Substance: QUININE SULFATE
     Indication: MUSCLE SPASMS
     Dosage: 200 MG, 1XDAY, AT NIGHT
     Route: 065
     Dates: start: 20090406
  13. SERTRALINE [Suspect]
     Active Substance: SERTRALINE HYDROCHLORIDE
     Indication: DEPRESSION
     Dosage: 50 MG, 1X/DAY
     Route: 048
     Dates: start: 20140604, end: 20140728
  14. ACICLOVIR [Concomitant]
     Active Substance: ACYCLOVIR
     Dosage: 10 G, UNK
     Route: 065
     Dates: start: 20120328
  15. IBUPROFEN. [Concomitant]
     Active Substance: IBUPROFEN
     Dosage: 100 G, AS DIRECTED
     Route: 065
     Dates: start: 20120918
  16. LANSOPRAZOLE. [Concomitant]
     Active Substance: LANSOPRAZOLE
     Indication: ABDOMINAL DISCOMFORT
     Dosage: 15 MG, 1X/DAY
     Route: 065
     Dates: start: 20091201
  17. ZOPICLONE [Concomitant]
     Active Substance: ZOPICLONE
     Dosage: 3.75 MG, 1X/DAY (NIGHT)
     Route: 065
     Dates: start: 20140729
  18. BISOPROLOL [Concomitant]
     Active Substance: BISOPROLOL
     Indication: ANGINA PECTORIS
     Dosage: 2.5 MG, 1X/DAY
     Route: 048
     Dates: start: 20070711

REACTIONS (5)
  - Facial nerve disorder [Not Recovered/Not Resolved]
  - Eyelid ptosis [Not Recovered/Not Resolved]
  - Emotional distress [Not Recovered/Not Resolved]
  - Feeling abnormal [Unknown]
  - Social problem [Unknown]

NARRATIVE: CASE EVENT DATE: 201409
